FAERS Safety Report 8421227-8 (Version None)
Quarter: 2012Q2

REPORT INFORMATION
  Report Type: 
  Country: None (occurrence: None)
  Receive Date: 20120604
  Receipt Date: 20120604
  Transmission Date: 20120825
  Serious: Yes (Hospitalization)
  Sender: FDA-Public Use
  Company Number: None

PATIENT
  Age: 75 Year
  Sex: Male
  Weight: 88.6 kg

DRUGS (1)
  1. ENTACAPONE [Suspect]
     Indication: PARKINSON'S DISEASE
     Dosage: MG
     Dates: start: 20120221, end: 20120306

REACTIONS (5)
  - HALLUCINATION [None]
  - ASTHENIA [None]
  - FALL [None]
  - PAIN IN JAW [None]
  - DIZZINESS [None]
